FAERS Safety Report 15722264 (Version 1)
Quarter: 2018Q4

REPORT INFORMATION
  Report Type: Spontaneous
  Country: US (occurrence: US)
  Receive Date: 20181129
  Receipt Date: 20181129
  Transmission Date: 20190205
  Serious: No
  Sender: FDA-Public Use
  Company Number: None

PATIENT
  Age: 84 Year
  Sex: Male

DRUGS (2)
  1. APIXABAN [Suspect]
     Active Substance: APIXABAN
     Indication: ATRIAL FIBRILLATION
     Dates: start: 20180621, end: 20180910
  2. APIXABAN [Suspect]
     Active Substance: APIXABAN
     Indication: MITRAL VALVE REPAIR
     Dates: start: 20180621, end: 20180910

REACTIONS (1)
  - Rash [None]

NARRATIVE: CASE EVENT DATE: 20180910
